FAERS Safety Report 11696398 (Version 2)
Quarter: 2015Q4

REPORT INFORMATION
  Report Type: Report from Study
  Country: FI (occurrence: FI)
  Receive Date: 20151104
  Receipt Date: 20151130
  Transmission Date: 20160304
  Serious: Yes (Hospitalization)
  Sender: FDA-Public Use
  Company Number: FI-BIOGENIDEC-2015BI146823

PATIENT
  Age: 58 Year
  Sex: Female

DRUGS (11)
  1. GILENYA [Concomitant]
     Active Substance: FINGOLIMOD HYDROCHLORIDE
  2. BECLOMET [Concomitant]
  3. TYSABRI [Suspect]
     Active Substance: NATALIZUMAB
     Indication: PRODUCT USED FOR UNKNOWN INDICATION
     Dates: end: 20121128
  4. PARA-TABS [Concomitant]
     Active Substance: ACETAMINOPHEN
  5. NASONEX [Concomitant]
     Active Substance: MOMETASONE FUROATE
  6. LACTULOSE. [Concomitant]
     Active Substance: LACTULOSE
  7. BUVENTOL [Concomitant]
  8. BURANA [Concomitant]
     Active Substance: IBUPROFEN
  9. PARACETAMOL [Concomitant]
     Active Substance: ACETAMINOPHEN
  10. DETRUSITOL [Concomitant]
     Active Substance: TOLTERODINE TARTRATE
  11. TYSABRI [Suspect]
     Active Substance: NATALIZUMAB
     Indication: PRODUCT USED FOR UNKNOWN INDICATION
     Dates: start: 20101201

REACTIONS (1)
  - Endometrial adenocarcinoma [Recovered/Resolved]

NARRATIVE: CASE EVENT DATE: 20150204
